FAERS Safety Report 6359116-5 (Version None)
Quarter: 2009Q3

REPORT INFORMATION
  Report Type: 
  Country: None (occurrence: None)
  Receive Date: 20090917
  Receipt Date: 20071009
  Transmission Date: 20100115
  Serious: Yes (Hospitalization, Other)
  Sender: FDA-Public Use
  Company Number: US-ASTRAZENECA-2006UW21786

PATIENT
  Age: 16658 Day
  Sex: Female
  Weight: 73.3 kg

DRUGS (6)
  1. SEROQUEL [Suspect]
     Indication: POST-TRAUMATIC STRESS DISORDER
     Route: 048
     Dates: start: 20051201, end: 20060401
  2. SEROQUEL [Suspect]
     Indication: DEPRESSION
     Route: 048
     Dates: start: 20051201, end: 20060401
  3. SEROQUEL [Suspect]
     Route: 048
     Dates: start: 20051201
  4. SEROQUEL [Suspect]
     Route: 048
     Dates: start: 20051201
  5. LEXAPRO [Concomitant]
     Dates: start: 20051213
  6. ATIVAN [Concomitant]
     Dates: start: 20051213

REACTIONS (5)
  - CHOLECYSTECTOMY [None]
  - DIABETES MELLITUS [None]
  - PANCREATITIS [None]
  - PANCREATITIS ACUTE [None]
  - TYPE 2 DIABETES MELLITUS [None]
